FAERS Safety Report 22104761 (Version 2)
Quarter: 2023Q1

REPORT INFORMATION
  Report Type: Spontaneous
  Country: US (occurrence: US)
  Receive Date: 20230316
  Receipt Date: 20230330
  Transmission Date: 20230418
  Serious: Yes (Other)
  Sender: FDA-Public Use
  Company Number: US-TEVA-2023-US-2864951

PATIENT
  Age: 78 Year
  Sex: Male

DRUGS (11)
  1. DOXORUBICIN [Suspect]
     Active Substance: DOXORUBICIN
     Indication: Diffuse large B-cell lymphoma
     Dosage: ALONG WITH RITUXIMAB, CYCLOPHOSPHAMIDE, VINCRISTINE, PREDNISONE
     Route: 065
  2. VINCRISTINE [Suspect]
     Active Substance: VINCRISTINE
     Indication: Diffuse large B-cell lymphoma
     Dosage: ALONG WITH RITUXIMAB, CYCLOPHOSPHAMIDE, DOXORUBICIN, PREDNISONE
     Route: 065
  3. PREDNISONE [Suspect]
     Active Substance: PREDNISONE
     Indication: Diffuse large B-cell lymphoma
     Dosage: ALONG WITH RITUXIMAB, CYCLOPHOSPHAMIDE, DOXORUBICIN, VINCRISTINE
     Route: 065
  4. LENALIDOMIDE [Suspect]
     Active Substance: LENALIDOMIDE
     Indication: Diffuse large B-cell lymphoma
     Dosage: ADMINISTERED ON DAY 1-21, EVERY 28 DAYS.
     Route: 048
  5. LENALIDOMIDE [Suspect]
     Active Substance: LENALIDOMIDE
     Dosage: DOSE REDUCED WITH CYCLE 5. ADMINISTERED ON DAY 1-21, EVERY 28 DAYS
     Route: 048
  6. IBRUTINIB [Suspect]
     Active Substance: IBRUTINIB
     Indication: Diffuse large B-cell lymphoma
     Dosage: 560 MILLIGRAM DAILY; (ALONG WITH RITUXIMAB AND LENALIDOMIDE)
     Route: 048
  7. IBRUTINIB [Suspect]
     Active Substance: IBRUTINIB
     Dosage: 420 MILLIGRAM DAILY; DOSE REDUCED WITH CYCLE 6. (ADMINISTERED ALONG WITH RITUXIMAB AND LENALIDOMIDE)
     Route: 048
  8. RITUXIMAB [Suspect]
     Active Substance: RITUXIMAB
     Indication: Diffuse large B-cell lymphoma
     Dosage: ALONG WITH CYCLOPHOSPHAMIDE, DOXORUBICIN, VINCRISTINE, PREDNISONE
     Route: 065
  9. RITUXIMAB [Suspect]
     Active Substance: RITUXIMAB
     Dosage: REDUCED DOSE ALONG WITH CYCLOPHOSPHAMIDE, DOXORUBICIN, VINCRISTINE, PREDNISONE
     Route: 065
  10. RITUXIMAB [Suspect]
     Active Substance: RITUXIMAB
     Dosage: ADMINISTERED EVERY 28 DAYS (INITIATED WITH IBRUTINIB AND LENALIDOMIDE). 6 CYCLES COMPLETED
     Route: 042
  11. CYCLOPHOSPHAMIDE [Suspect]
     Active Substance: CYCLOPHOSPHAMIDE
     Indication: Diffuse large B-cell lymphoma
     Dosage: ALONG WITH RITUXIMAB, DOXORUBICIN, VINCRISTINE, PREDNISONE
     Route: 065

REACTIONS (6)
  - Febrile neutropenia [Unknown]
  - Diarrhoea [Recovering/Resolving]
  - Fatigue [Unknown]
  - Neutropenia [Recovering/Resolving]
  - Weight decreased [Unknown]
  - Decreased appetite [Unknown]
